FAERS Safety Report 18767207 (Version 11)
Quarter: 2022Q3

REPORT INFORMATION
  Report Type: Report from Study
  Country: DE (occurrence: None)
  Receive Date: 20210121
  Receipt Date: 20220916
  Transmission Date: 20221026
  Serious: Yes (Life-Threatening, Hospitalization)
  Sender: FDA-Public Use
  Company Number: DE-EISAI MEDICAL RESEARCH-EC-2021-086690

PATIENT
  Age: 59 Year
  Sex: Male
  Weight: 77 kg

DRUGS (8)
  1. LENVATINIB [Suspect]
     Active Substance: LENVATINIB
     Indication: Non-small cell lung cancer metastatic
     Route: 048
     Dates: start: 20201221, end: 20210102
  2. LENVATINIB [Suspect]
     Active Substance: LENVATINIB
     Dosage: STARTING DOSE AT 24MG, FLUCTUATED DOSAGE
     Route: 048
     Dates: start: 20210105
  3. RAMIPRIL [Concomitant]
     Active Substance: RAMIPRIL
     Dates: start: 201812
  4. BISOPROLOL [Concomitant]
     Active Substance: BISOPROLOL
     Dates: start: 201903
  5. PANTOPRAZOLE [Concomitant]
     Active Substance: PANTOPRAZOLE
     Dates: start: 202004
  6. OLODATEROL HYDROCHLORIDE\TIOTROPIUM BROMIDE MONOHYDRATE [Concomitant]
     Active Substance: OLODATEROL HYDROCHLORIDE\TIOTROPIUM BROMIDE MONOHYDRATE
     Dates: start: 201904
  7. DIPYRONE [Concomitant]
     Active Substance: DIPYRONE
     Dates: start: 202006
  8. FENTANYL [Concomitant]
     Active Substance: FENTANYL
     Dosage: EXTENDED RELEASE
     Dates: start: 202010, end: 20210407

REACTIONS (1)
  - Hypertensive crisis [Recovered/Resolved]

NARRATIVE: CASE EVENT DATE: 20210102
